FAERS Safety Report 4504803-4 (Version None)
Quarter: 2004Q4

REPORT INFORMATION
  Report Type: 
  Country: None (occurrence: None)
  Receive Date: 20041118
  Receipt Date: 20041112
  Transmission Date: 20050328
  Serious: Yes (Other)
  Sender: FDA-Public Use
  Company Number: BR-MERCK-0411BRA00110

PATIENT
  Sex: Male

DRUGS (2)
  1. VIOXX [Suspect]
     Indication: RENAL SURGERY
     Route: 048
     Dates: start: 20040812, end: 20040930
  2. CARBAMAZEPINE [Concomitant]
     Indication: EPILEPSY
     Route: 048

REACTIONS (2)
  - EPILEPSY [None]
  - HEADACHE [None]
